FAERS Safety Report 7070453-1 (Version None)
Quarter: 2010Q4

REPORT INFORMATION
  Report Type: 
  Country: None (occurrence: None)
  Receive Date: 20101028
  Receipt Date: 20101028
  Transmission Date: 20110411
  Serious: Yes (Hospitalization, Disabling)
  Sender: FDA-Public Use
  Company Number: None

PATIENT
  Sex: Female
  Weight: 68.0396 kg

DRUGS (1)
  1. VESICARE [Suspect]

REACTIONS (4)
  - CONFUSIONAL STATE [None]
  - FALL [None]
  - PELVIC FRACTURE [None]
  - WALKING AID USER [None]
